FAERS Safety Report 12936143 (Version 1)
Quarter: 2016Q4

REPORT INFORMATION
  Report Type: Spontaneous
  Country: US (occurrence: US)
  Receive Date: 20161111
  Receipt Date: 20161111
  Transmission Date: 20170207
  Serious: Yes (Death)
  Sender: FDA-Public Use
  Company Number: None

PATIENT
  Age: 1 Month
  Sex: Male
  Weight: 3.18 kg

DRUGS (1)
  1. CEFTRIAXONE. [Suspect]
     Active Substance: CEFTRIAXONE
     Indication: URINARY TRACT INFECTION
     Dosage: ?          OTHER FREQUENCY:ONCE;?
     Route: 042
     Dates: start: 20161104, end: 20161104

REACTIONS (10)
  - Blood glucose abnormal [None]
  - General physical health deterioration [None]
  - Ventricular fibrillation [None]
  - Extrasystoles [None]
  - Respiratory rate decreased [None]
  - Tachycardia [None]
  - Cyanosis [None]
  - Pulse absent [None]
  - Ventricular tachycardia [None]
  - Cardiac arrest [None]

NARRATIVE: CASE EVENT DATE: 20161105
